FAERS Safety Report 7082430-5 (Version None)
Quarter: 2010Q4

REPORT INFORMATION
  Report Type: 
  Country: None (occurrence: None)
  Receive Date: 20101104
  Receipt Date: 20101026
  Transmission Date: 20110411
  Serious: No
  Sender: FDA-Public Use
  Company Number: 2009BI027141

PATIENT
  Age: 51 Year
  Sex: Female

DRUGS (1)
  1. TYSABRI [Suspect]
     Indication: MULTIPLE SCLEROSIS
     Route: 042
     Dates: start: 20080522

REACTIONS (6)
  - ALVEOLAR OSTEITIS [None]
  - APHAGIA [None]
  - FACIAL PAIN [None]
  - FATIGUE [None]
  - TOOTHACHE [None]
  - WEIGHT DECREASED [None]
